FAERS Safety Report 4895880-X (Version None)
Quarter: 2005Q4

REPORT INFORMATION
  Report Type: 
  Country: None (occurrence: None)
  Receive Date: 20051220
  Receipt Date: 20050930
  Transmission Date: 20060501
  Serious: Yes (Other)
  Sender: FDA-Public Use
  Company Number: 419880

PATIENT
  Sex: Male

DRUGS (3)
  1. BONIVA [Suspect]
     Indication: DRUG USE FOR UNKNOWN INDICATION
     Dosage: ORAL
     Route: 048
  2. NEXIUM [Suspect]
     Indication: DRUG USE FOR UNKNOWN INDICATION
     Dosage: ORAL
     Route: 048
  3. CALCIUM SUPPLEMENT (CALCIUM) [Concomitant]

REACTIONS (3)
  - CHEST DISCOMFORT [None]
  - FLATULENCE [None]
  - OESOPHAGEAL DISCOMFORT [None]
